FAERS Safety Report 16132589 (Version 2)
Quarter: 2019Q2

REPORT INFORMATION
  Report Type: Other
  Country: CA (occurrence: CA)
  Receive Date: 20190329
  Receipt Date: 20190422
  Transmission Date: 20190711
  Serious: Yes (Hospitalization, Other)
  Sender: FDA-Public Use
  Company Number: CA-APOTEX-2019AP010127

PATIENT
  Age: 60 Year
  Sex: Female

DRUGS (2)
  1. SALBUTAMOL [Suspect]
     Active Substance: ALBUTEROL
     Indication: PRODUCT USED FOR UNKNOWN INDICATION
     Dosage: UNK
     Route: 065
  2. NUCALA [Suspect]
     Active Substance: MEPOLIZUMAB
     Indication: ASTHMA
     Dosage: UNK
     Route: 042

REACTIONS (7)
  - Malaise [Recovering/Resolving]
  - Dyspnoea [Recovering/Resolving]
  - Pneumonia [Recovering/Resolving]
  - Therapeutic product effect incomplete [Recovering/Resolving]
  - Bronchitis [Recovering/Resolving]
  - Lung infection [Recovering/Resolving]
  - Asthma [Recovering/Resolving]
